FAERS Safety Report 25334332 (Version 2)
Quarter: 2025Q2

REPORT INFORMATION
  Report Type: Spontaneous
  Country: DE (occurrence: DE)
  Receive Date: 20250520
  Receipt Date: 20250613
  Transmission Date: 20250717
  Serious: Yes (Other)
  Sender: ACCORD
  Company Number: None

PATIENT
  Sex: Female

DRUGS (1)
  1. LETROZOLE [Suspect]
     Active Substance: LETROZOLE
     Indication: Product used for unknown indication

REACTIONS (18)
  - Hepatotoxicity [Unknown]
  - Oliguria [Unknown]
  - Pyrexia [Unknown]
  - Vomiting [Unknown]
  - Dysphagia [Recovering/Resolving]
  - Sleep disorder [Unknown]
  - Muscle spasms [Unknown]
  - Nightmare [Unknown]
  - Weight decreased [Recovered/Resolved]
  - Weight increased [Unknown]
  - Faeces discoloured [Unknown]
  - Depression [Unknown]
  - Liver function test increased [Unknown]
  - Asthenia [Unknown]
  - Nausea [Unknown]
  - Drug intolerance [Unknown]
  - Weight gain poor [Unknown]
  - Faeces pale [Unknown]
